FAERS Safety Report 7135991-1 (Version None)
Quarter: 2010Q4

REPORT INFORMATION
  Report Type: 
  Country: None (occurrence: None)
  Receive Date: 20101204
  Receipt Date: 20101124
  Transmission Date: 20110411
  Serious: Yes (Other)
  Sender: FDA-Public Use
  Company Number: GB-BAYER-2010-000498

PATIENT
  Age: 78 Year
  Sex: Female

DRUGS (1)
  1. FEMINAX EXPRESS [Suspect]
     Indication: PRODUCT USED FOR UNKNOWN INDICATION
     Dosage: 9.6 TO 16 G
     Route: 048

REACTIONS (1)
  - BLOOD UREA INCREASED [None]
